FAERS Safety Report 12178752 (Version 1)
Quarter: 2016Q1

REPORT INFORMATION
  Report Type: Spontaneous
  Country: US (occurrence: US)
  Receive Date: 20160314
  Receipt Date: 20160314
  Transmission Date: 20160526
  Serious: No
  Sender: FDA-Public Use
  Company Number: US-SA-2016SA004147

PATIENT
  Age: 52 Year
  Sex: Female

DRUGS (7)
  1. SOLOSTAR [Suspect]
     Active Substance: DEVICE
     Indication: TYPE 1 DIABETES MELLITUS
     Dates: start: 201510
  2. APIDRA SOLOSTAR [Concomitant]
     Active Substance: INSULIN GLULISINE
     Dates: start: 201510
  3. HUMALOG [Concomitant]
     Active Substance: INSULIN LISPRO
     Dosage: USE UPTO 65UNITS OF HUMALOG ON SOME DAYS.
  4. SOLOSTAR [Concomitant]
     Active Substance: DEVICE
     Dates: start: 201510
  5. TOUJEO [Suspect]
     Active Substance: INSULIN GLARGINE
     Indication: TYPE 1 DIABETES MELLITUS
     Dosage: DOSE:26 UNIT(S)
     Route: 065
     Dates: start: 201510
  6. LANTUS SOLOSTAR [Concomitant]
     Active Substance: INSULIN GLARGINE
  7. SOLOSTAR [Concomitant]
     Active Substance: DEVICE

REACTIONS (5)
  - Visual impairment [Unknown]
  - Wrong technique in product usage process [Unknown]
  - Cerebral disorder [Unknown]
  - Blood glucose increased [Unknown]
  - Glycosylated haemoglobin increased [Unknown]
